FAERS Safety Report 5801571-0 (Version None)
Quarter: 2008Q3

REPORT INFORMATION
  Report Type: 
  Country: None (occurrence: None)
  Receive Date: 20080702
  Receipt Date: 20080618
  Transmission Date: 20090109
  Serious: Yes (Other)
  Sender: FDA-Public Use
  Company Number: 340002M07USA

PATIENT
  Age: 38 Year
  Sex: Male

DRUGS (3)
  1. OVIDREL [Suspect]
     Indication: OFF LABEL USE
     Dosage: 3 IN 1 WEEKS, 250 MCG, 3 IN 1 WEEKS
     Dates: start: 20050101, end: 20071022
  2. OVIDREL [Suspect]
     Indication: OFF LABEL USE
     Dosage: 3 IN 1 WEEKS, 250 MCG, 3 IN 1 WEEKS
     Dates: start: 20071111
  3. TESTIM CREAM (TESTOSTERONE) [Concomitant]

REACTIONS (5)
  - BLOOD HUMAN CHORIONIC GONADOTROPIN INCREASED [None]
  - OFF LABEL USE [None]
  - PAIN [None]
  - SPORTS INJURY [None]
  - TESTICULAR NEOPLASM [None]
